FAERS Safety Report 17298761 (Version 1)
Quarter: 2020Q1

REPORT INFORMATION
  Report Type: Spontaneous
  Country: US (occurrence: US)
  Receive Date: 20200122
  Receipt Date: 20200122
  Transmission Date: 20200409
  Serious: Yes (Hospitalization, Other)
  Sender: FDA-Public Use
  Company Number: ALC2020US000724

PATIENT
  Age: 57 Year
  Sex: Female
  Weight: 62.59 kg

DRUGS (3)
  1. CIPRO [Suspect]
     Active Substance: CIPROFLOXACIN HYDROCHLORIDE
     Indication: PRODUCT USED FOR UNKNOWN INDICATION
     Dosage: UNK
     Route: 065
  2. HUMIRA [Concomitant]
     Active Substance: ADALIMUMAB
     Indication: PRODUCT USED FOR UNKNOWN INDICATION
     Dosage: UNK
     Route: 058
  3. BETADINE [Suspect]
     Active Substance: POVIDONE-IODINE
     Indication: PRODUCT USED FOR UNKNOWN INDICATION
     Dosage: UNK
     Route: 065
     Dates: start: 20190824

REACTIONS (7)
  - Hyperaemia [Unknown]
  - Hypersensitivity [Unknown]
  - Rash [Unknown]
  - Rash papular [Unknown]
  - Appendicitis [Unknown]
  - Injection site bruising [Unknown]
  - Incision site inflammation [Unknown]

NARRATIVE: CASE EVENT DATE: 201908
